FAERS Safety Report 21772499 (Version 1)
Quarter: 2022Q4

REPORT INFORMATION
  Report Type: Spontaneous
  Country: FR (occurrence: FR)
  Receive Date: 20221223
  Receipt Date: 20221223
  Transmission Date: 20230112
  Serious: Yes (Other)
  Sender: FDA-Public Use
  Company Number: None

PATIENT
  Age: 71 Year
  Sex: Female
  Weight: 70 kg

DRUGS (4)
  1. CEFTRIAXONE SODIUM [Suspect]
     Active Substance: CEFTRIAXONE SODIUM
     Indication: Arthritis infective
     Dosage: UNIT DOSE : 4 GRAM, FREQUENCY TIME : 1 DAYS, DURATION : 10 DAYS
     Route: 065
     Dates: start: 20221115, end: 20221125
  2. PREGABALIN [Suspect]
     Active Substance: PREGABALIN
     Indication: Arthritis infective
     Dosage: 50 MILLIGRAM DAILY; 25 MG TWICE A DAY, DURATION : 7 DAYS
     Route: 065
     Dates: start: 20221118, end: 20221125
  3. FLAGYL [Suspect]
     Active Substance: METRONIDAZOLE\METRONIDAZOLE HYDROCHLORIDE
     Indication: Arthritis infective
     Dosage: 1500 MILLIGRAM DAILY; 500 MG 3 TIMES A DAY, DURATION : 10 DAYS
     Route: 065
     Dates: start: 20221115, end: 20221125
  4. DALBAVANCIN HYDROCHLORIDE [Suspect]
     Active Substance: DALBAVANCIN HYDROCHLORIDE
     Indication: Arthritis infective
     Dosage: UNIT DOSE : 1500 MG, FREQUENCY TIME : 8 DAYS, DURATION : 8 DAYS
     Route: 065
     Dates: start: 20221115, end: 20221123

REACTIONS (1)
  - Neutropenia [Not Recovered/Not Resolved]

NARRATIVE: CASE EVENT DATE: 20221121
